FAERS Safety Report 13976875 (Version 6)
Quarter: 2022Q4

REPORT INFORMATION
  Report Type: Spontaneous
  Country: IT (occurrence: IT)
  Receive Date: 20170915
  Receipt Date: 20221203
  Transmission Date: 20230113
  Serious: Yes (Hospitalization, Other)
  Sender: FDA-Public Use
  Company Number: PHHY2017IT133922

PATIENT
  Age: 51 Year
  Sex: Female

DRUGS (4)
  1. QUETIAPINE FUMARATE [Suspect]
     Active Substance: QUETIAPINE FUMARATE
     Indication: Self-injurious ideation
     Dosage: 60 DOSAGE FORM (1 TOTAL/ONCE)
     Route: 048
     Dates: start: 20170805, end: 20170805
  2. VENLAFAXINE HYDROCHLORIDE [Suspect]
     Active Substance: VENLAFAXINE HYDROCHLORIDE
     Indication: Self-injurious ideation
     Dosage: 5 DOSAGE FORM (1 TOTAL/ONCE)
     Route: 048
     Dates: start: 20170805, end: 20170805
  3. CETIRIZINE HYDROCHLORIDE\PSEUDOEPHEDRINE HYDROCHLORIDE [Suspect]
     Active Substance: CETIRIZINE HYDROCHLORIDE\PSEUDOEPHEDRINE HYDROCHLORIDE
     Indication: Self-injurious ideation
     Dosage: 12 DOSAGE FORM (1 TOTAL/ONCE)
     Route: 048
     Dates: start: 20170805, end: 20170805
  4. EBASTINE [Suspect]
     Active Substance: EBASTINE
     Indication: Self-injurious ideation
     Dosage: 3 DOSAGE FORM (1 TOTAL/ ONCE)
     Route: 048
     Dates: start: 20170805, end: 20170805

REACTIONS (4)
  - Coma [Recovered/Resolved]
  - Drug abuse [Unknown]
  - Self-injurious ideation [Recovered/Resolved]
  - Intentional overdose [Unknown]

NARRATIVE: CASE EVENT DATE: 20170805
